FAERS Safety Report 4334298-5 (Version None)
Quarter: 2004Q1

REPORT INFORMATION
  Report Type: 
  Country: None (occurrence: None)
  Receive Date: 20040305
  Receipt Date: 20040322
  Transmission Date: 20041129
  Serious: No
  Sender: FDA-Public Use
  Company Number: 04P-087-0254396-00

PATIENT
  Age: 78 Year
  Sex: Female
  Weight: 65 kg

DRUGS (12)
  1. SEVOFLURANE [Suspect]
     Indication: ANAESTHESIA
     Dosage: INHALATION
  2. NITROUS OXIDE [Suspect]
     Indication: ANAESTHESIA
     Dosage: 67%, INHALATION
  3. PROPOFOL [Concomitant]
  4. LIDOCAINE HYDROCHLORIDE [Concomitant]
  5. FENTANYL CITRATE [Concomitant]
  6. VECURONIUM BROMIDE [Concomitant]
  7. FLURBIPROFEN AXETIL [Concomitant]
  8. HEPARIN [Concomitant]
  9. DIAZEPAM [Concomitant]
  10. HYPOTENSIVE DRUG [Concomitant]
  11. CRYSTAL SOLUTION [Concomitant]
  12. COLLOID SOLUTION [Concomitant]

REACTIONS (4)
  - BLOOD PRESSURE INCREASED [None]
  - BRADYCARDIA [None]
  - DYSPNOEA [None]
  - PULMONARY CONGESTION [None]
